FAERS Safety Report 9983724 (Version 2)
Quarter: 2014Q1

REPORT INFORMATION
  Report Type: Spontaneous
  Country: US (occurrence: US)
  Receive Date: 20140307
  Receipt Date: 20140311
  Transmission Date: 20141002
  Serious: Yes (Hospitalization)
  Sender: FDA-Public Use
  Company Number: US-BAXTER-2014BAX011537

PATIENT
  Age: 66 Year
  Sex: Female

DRUGS (4)
  1. DIANEAL LOW CALCIUM [Suspect]
     Indication: RENAL FAILURE CHRONIC
     Route: 033
     Dates: end: 20140213
  2. DIANEAL LOW CALCIUM [Suspect]
     Route: 033
     Dates: start: 201402
  3. DIANEAL LOW CALCIUM [Suspect]
     Indication: RENAL FAILURE CHRONIC
     Route: 033
     Dates: end: 20140213
  4. DIANEAL LOW CALCIUM [Suspect]
     Route: 033
     Dates: start: 201402

REACTIONS (1)
  - Umbilical hernia [Recovering/Resolving]
